FAERS Safety Report 15132982 (Version 1)
Quarter: 2018Q3

REPORT INFORMATION
  Report Type: Spontaneous
  Country: IT (occurrence: IT)
  Receive Date: 20180712
  Receipt Date: 20180712
  Transmission Date: 20181010
  Serious: Yes (Other)
  Sender: FDA-Public Use
  Company Number: IT-009507513-1807ITA001447

PATIENT
  Age: 79 Year
  Sex: Female

DRUGS (4)
  1. BLOPRESID [Concomitant]
     Active Substance: CANDESARTAN CILEXETIL\HYDROCHLOROTHIAZIDE
     Indication: HYPERTENSION
     Dosage: 1 DF, UNK
  2. FOSAVANCE [Suspect]
     Active Substance: ALENDRONATE SODIUM\CHOLECALCIFEROL
     Indication: OSTEOPOROSIS
     Dosage: 1 DF, QW
     Route: 048
     Dates: start: 20070101, end: 20130101
  3. DIBASE [Concomitant]
     Active Substance: CHOLECALCIFEROL
     Indication: OSTEOPOROSIS
     Dosage: UNK
     Route: 048
  4. CARDIRENE [Concomitant]
     Active Substance: ASPIRIN DL-LYSINE
     Dosage: UNK
     Route: 048

REACTIONS (2)
  - Osteonecrosis of jaw [Unknown]
  - Gingivitis [Unknown]

NARRATIVE: CASE EVENT DATE: 20180522
